FAERS Safety Report 7913523-5 (Version None)
Quarter: 2011Q4

REPORT INFORMATION
  Report Type: 
  Country: None (occurrence: None)
  Receive Date: 20111110
  Receipt Date: 20110621
  Transmission Date: 20120403
  Serious: Yes (Other)
  Sender: FDA-Public Use
  Company Number: 2011SP018934

PATIENT
  Age: 38 Year
  Sex: Male

DRUGS (1)
  1. LIDOCAINE [Suspect]
     Indication: LACERATION
     Dosage: BID, TOP
     Route: 061
     Dates: start: 20110326, end: 20110330

REACTIONS (13)
  - DIVORCED [None]
  - AGEUSIA [None]
  - ERYTHEMA [None]
  - PAROSMIA [None]
  - ANOSMIA [None]
  - OROPHARYNGEAL DISCOMFORT [None]
  - MUSCLE SPASMS [None]
  - HYPOACUSIS [None]
  - PRODUCT QUALITY ISSUE [None]
  - LOSS OF EMPLOYMENT [None]
  - APTYALISM [None]
  - DRY MOUTH [None]
  - BRAIN INJURY [None]
